FAERS Safety Report 14487896 (Version 2)
Quarter: 2018Q1

REPORT INFORMATION
  Report Type: Report from Study
  Country: GB (occurrence: GB)
  Receive Date: 20180205
  Receipt Date: 20180219
  Transmission Date: 20180509
  Serious: Yes (Hospitalization, Other)
  Sender: FDA-Public Use
  Company Number: GB-BAYER-2018-021418

PATIENT
  Age: 74 Year
  Sex: Male
  Weight: 86.4 kg

DRUGS (1)
  1. ASPIRIN. [Suspect]
     Active Substance: ASPIRIN
     Indication: NEOPLASM
     Dosage: 100MG OR 300MG OR PLACEBO
     Route: 048
     Dates: start: 20161209, end: 20170225

REACTIONS (2)
  - Fistula of small intestine [Not Recovered/Not Resolved]
  - Gastrointestinal haemorrhage [None]

NARRATIVE: CASE EVENT DATE: 20170314
